APPROVED DRUG PRODUCT: GLIPIZIDE
Active Ingredient: GLIPIZIDE
Strength: 10MG
Dosage Form/Route: TABLET, EXTENDED RELEASE;ORAL
Application: A076467 | Product #002 | TE Code: AB
Applicant: WATSON LABORATORIES INC
Approved: Nov 7, 2003 | RLD: No | RS: No | Type: RX